FAERS Safety Report 8120605-4 (Version None)
Quarter: 2012Q1

REPORT INFORMATION
  Report Type: 
  Country: None (occurrence: None)
  Receive Date: 20120207
  Receipt Date: 20120130
  Transmission Date: 20120608
  Serious: Yes (Other)
  Sender: FDA-Public Use
  Company Number: US-PFIZER INC-2012027627

PATIENT
  Sex: Female

DRUGS (5)
  1. GLUCOTROL [Suspect]
     Dosage: UNK
  2. GLUCOTROL XL [Suspect]
     Dosage: UNK
  3. LIPITOR [Suspect]
     Dosage: UNK
  4. PROCARDIA XL [Suspect]
     Dosage: UNK
  5. XALATAN [Suspect]
     Dosage: UNK

REACTIONS (2)
  - BLOOD GLUCOSE ABNORMAL [None]
  - DRUG INEFFECTIVE [None]
